FAERS Safety Report 11967312 (Version 4)
Quarter: 2016Q2

REPORT INFORMATION
  Report Type: Spontaneous
  Country: US (occurrence: US)
  Receive Date: 20160127
  Receipt Date: 20160526
  Transmission Date: 20160815
  Serious: Yes (Hospitalization, Other)
  Sender: FDA-Public Use
  Company Number: US-BAYER-2016-015621

PATIENT
  Age: 23 Year
  Sex: Female

DRUGS (9)
  1. PRILOSEC [Concomitant]
     Active Substance: OMEPRAZOLE MAGNESIUM
  2. ONDANSETRON [Concomitant]
     Active Substance: ONDANSETRON
     Dosage: UNK
     Dates: start: 2001
  3. MICONAZOLE. [Concomitant]
     Active Substance: MICONAZOLE
  4. MIRENA [Suspect]
     Active Substance: LEVONORGESTREL
     Dosage: 20 MCG/24HR, CONT
     Route: 015
     Dates: start: 200601, end: 20131023
  5. ATIVAN [Concomitant]
     Active Substance: LORAZEPAM
     Dosage: UNK
     Dates: start: 20130910
  6. OXYCODONE/APAP [Concomitant]
     Active Substance: ACETAMINOPHEN\OXYCODONE HYDROCHLORIDE
     Dosage: UNK
     Dates: start: 20130910
  7. IBUPROFEN. [Concomitant]
     Active Substance: IBUPROFEN
     Dosage: UNK
     Dates: start: 20130910
  8. PARAGARD T 380A [Concomitant]
     Active Substance: COPPER
  9. MOTRIN [Concomitant]
     Active Substance: IBUPROFEN

REACTIONS (10)
  - Device use error [None]
  - Uterine perforation [None]
  - Device issue [None]
  - Device use error [None]
  - Abdominal pain [None]
  - Scar [None]
  - Cholecystectomy [None]
  - Incision site pain [None]
  - Medical device discomfort [None]
  - Device difficult to use [None]

NARRATIVE: CASE EVENT DATE: 200602
